FAERS Safety Report 11775182 (Version 1)
Quarter: 2015Q4

REPORT INFORMATION
  Report Type: Spontaneous
  Country: US (occurrence: US)
  Receive Date: 20151124
  Receipt Date: 20151124
  Transmission Date: 20160304
  Serious: Yes (Hospitalization)
  Sender: FDA-Public Use
  Company Number: US-MYLANLABS-2015M1041378

PATIENT

DRUGS (3)
  1. CYTARABINE. [Suspect]
     Active Substance: CYTARABINE
     Indication: PRODUCT USED FOR UNKNOWN INDICATION
     Dosage: INDUCTION CHEMOTHERAPY: 7 DAILY DOSES OF CYTARABINE 100 MG/M2
     Route: 065
  2. IDARUBICIN [Concomitant]
     Active Substance: IDARUBICIN
     Indication: ACUTE MYELOID LEUKAEMIA
     Dosage: INDUCTION CHEMOTHERAPY: 3 DAILY DOSES OF IDARUBICIN 12 MG/M2
     Route: 065
  3. CYTARABINE. [Suspect]
     Active Substance: CYTARABINE
     Dosage: CONSOLIDATION THERAPY: THREE CYCLES WITH 3 G/M2 TWICE DAILY ON DAYS 1, 3 AND 5 INFUSED OVER 3H
     Route: 065

REACTIONS (6)
  - Vomiting [Unknown]
  - Sinus bradycardia [Recovered/Resolved]
  - Pancytopenia [Unknown]
  - Mucosal inflammation [Unknown]
  - Nausea [Unknown]
  - Gastrointestinal haemorrhage [Unknown]
